FAERS Safety Report 7525183-6 (Version None)
Quarter: 2011Q2

REPORT INFORMATION
  Report Type: 
  Country: None (occurrence: None)
  Receive Date: 20110526
  Receipt Date: 20110510
  Transmission Date: 20111010
  Serious: Yes (Hospitalization)
  Sender: FDA-Public Use
  Company Number: CIP11000550

PATIENT
  Age: 63 Year
  Sex: Female
  Weight: 86.6 kg

DRUGS (21)
  1. LEVOTHYROXINE SODIUM [Concomitant]
  2. TERCONAZOLE (TERCONAZOLE) [Concomitant]
  3. NASACORT [Concomitant]
  4. TAMIFLU [Concomitant]
  5. RESTASIS (CICLOSPORIN) [Concomitant]
  6. ZANTAC [Concomitant]
  7. ALLEGRA /01314201/ (FEXOFENADINE) [Concomitant]
  8. PROZAC [Concomitant]
  9. ADVAIR HFA [Concomitant]
  10. DOXYCYCLINE [Concomitant]
  11. PREDNISONE [Concomitant]
  12. METRONIDAZOLE [Concomitant]
  13. ACTONEL [Suspect]
     Indication: OSTEOPOROSIS
     Dosage: 35 MG, 1/WEEK, ORAL
     Route: 048
     Dates: start: 20090202, end: 20100101
  14. FOSAMAX [Suspect]
     Indication: OSTEOPOROSIS
     Dosage: 5 MG, DAILY, ORAL
     Route: 048
     Dates: start: 19980310, end: 19990101
  15. VOLTAREN [Concomitant]
  16. PROAIR (FLUTICASONE PROPIONATE) [Concomitant]
  17. ZYRTEC [Concomitant]
  18. ASPIRIN [Concomitant]
  19. FOSAMAX [Suspect]
     Indication: OSTEOPOROSIS
     Dosage: 70 MG, 1/WEEK, ORAL
     Route: 048
     Dates: start: 20030101, end: 20090101
  20. TYLENOL /0002001/ (PARACETAMOL) [Concomitant]
  21. KENALOG IN ORBASE (TRIAMCINOLONE ACETONIDE) [Concomitant]

REACTIONS (25)
  - ARTHRALGIA [None]
  - ABASIA [None]
  - PYREXIA [None]
  - MENISCUS LESION [None]
  - FEMUR FRACTURE [None]
  - OEDEMA PERIPHERAL [None]
  - ANAEMIA POSTOPERATIVE [None]
  - DRUG INEFFECTIVE [None]
  - STRESS FRACTURE [None]
  - CHONDROCALCINOSIS [None]
  - ILIOTIBIAL BAND SYNDROME [None]
  - NAUSEA [None]
  - LIGAMENT RUPTURE [None]
  - FRACTURE DISPLACEMENT [None]
  - BURSITIS [None]
  - SYNOVIAL CYST [None]
  - PAIN IN EXTREMITY [None]
  - CONTUSION [None]
  - TENDERNESS [None]
  - GAIT DISTURBANCE [None]
  - FALL [None]
  - HIGH TURNOVER OSTEOPATHY [None]
  - MULTIPLE MYELOMA [None]
  - POOR QUALITY SLEEP [None]
  - ECCHYMOSIS [None]
